FAERS Safety Report 5889657-6 (Version None)
Quarter: 2008Q3

REPORT INFORMATION
  Report Type: 
  Country: None (occurrence: None)
  Receive Date: 20080919
  Receipt Date: 20070327
  Transmission Date: 20090109
  Serious: Yes (Hospitalization)
  Sender: FDA-Public Use
  Company Number: IT-ROCHE-570967

PATIENT
  Sex: Male

DRUGS (2)
  1. PEGASYS [Suspect]
     Route: 065
     Dates: start: 20061114, end: 20070914
  2. RIBAVIRIN [Suspect]
     Route: 065
     Dates: start: 20061114, end: 20070914

REACTIONS (1)
  - SYNCOPE [None]
